FAERS Safety Report 9384468 (Version 2)
Quarter: 2013Q3

REPORT INFORMATION
  Report Type: Spontaneous
  Country: US (occurrence: US)
  Receive Date: 20130705
  Receipt Date: 20130731
  Transmission Date: 20140515
  Serious: Yes (Other)
  Sender: FDA-Public Use
  Company Number: US-AMGEN-USASP2013046512

PATIENT
  Age: 78 Year
  Sex: Female

DRUGS (5)
  1. PROLIA [Suspect]
     Indication: OSTEOPOROSIS
     Dosage: 60 MG, Q6MO
     Route: 065
     Dates: start: 20100920, end: 20130411
  2. PRAVACHOL [Suspect]
     Indication: HYPERLIPIDAEMIA
     Dosage: 20 MG, QD
     Route: 065
  3. TRAMADOL [Concomitant]
     Dosage: 50 MG, Q6H
     Route: 048
  4. ACCURETIC [Concomitant]
     Indication: HYPERTENSION
     Dosage: 20/25
     Route: 048
  5. REQUIP [Concomitant]
     Indication: RESTLESS LEGS SYNDROME
     Dosage: 0.5 MG, TID
     Route: 048

REACTIONS (6)
  - Rheumatoid arthritis [Unknown]
  - Staphylococcal infection [Recovered/Resolved]
  - Feeling abnormal [Unknown]
  - Pain [Unknown]
  - Arthralgia [Not Recovered/Not Resolved]
  - Myalgia [Not Recovered/Not Resolved]
